FAERS Safety Report 7374354-0 (Version None)
Quarter: 2011Q1

REPORT INFORMATION
  Report Type: 
  Country: None (occurrence: None)
  Receive Date: 20110225
  Receipt Date: 20110107
  Transmission Date: 20110831
  Serious: No
  Sender: FDA-Public Use
  Company Number: 321431

PATIENT
  Sex: Male

DRUGS (3)
  1. NOVOLOG [Concomitant]
  2. VICTOZA [Suspect]
     Indication: TYPE 2 DIABETES MELLITUS
     Dosage: SUBCUTANEOUS
     Route: 058
  3. LANTUS (INSULIN ANALOGUE) [Concomitant]

REACTIONS (4)
  - DISCOMFORT [None]
  - DECREASED APPETITE [None]
  - MALAISE [None]
  - MYALGIA [None]
